FAERS Safety Report 8228376 (Version 4)
Quarter: 2013Q2

REPORT INFORMATION
  Report Type: Spontaneous
  Country: US (occurrence: US)
  Receive Date: 20111103
  Receipt Date: 20130614
  Transmission Date: 20140414
  Serious: Yes (Life-Threatening, Hospitalization, Other)
  Sender: FDA-Public Use
  Company Number: US-ASTRAZENECA-2011SE64349

PATIENT
  Age: 58 Year
  Sex: Female

DRUGS (5)
  1. SEROQUEL [Suspect]
     Indication: DEPRESSION
     Dosage: 400 MG AT NIGHT AND 100 MG TWICE A DAY
     Route: 048
     Dates: start: 2010, end: 2010
  2. SEROQUEL [Suspect]
     Indication: CONVULSION
     Dosage: 400 MG AT NIGHT AND 100 MG TWICE A DAY
     Route: 048
     Dates: start: 2010, end: 2010
  3. SEROQUEL [Suspect]
     Indication: DEPRESSION
     Route: 048
     Dates: start: 2010
  4. SEROQUEL [Suspect]
     Indication: CONVULSION
     Route: 048
     Dates: start: 2010
  5. NEXIUM [Suspect]
     Route: 048

REACTIONS (12)
  - Coma [Unknown]
  - Hypertension [Unknown]
  - Cerebrovascular accident [Unknown]
  - Back disorder [Unknown]
  - Dyspnoea [Unknown]
  - Convulsion [Unknown]
  - Amnesia [Unknown]
  - Dyslexia [Unknown]
  - Memory impairment [Unknown]
  - Aphasia [Unknown]
  - Flatulence [Unknown]
  - Off label use [Unknown]
